FAERS Safety Report 15897360 (Version 1)
Quarter: 2019Q1

REPORT INFORMATION
  Report Type: Spontaneous
  Country: US (occurrence: US)
  Receive Date: 20190131
  Receipt Date: 20190131
  Transmission Date: 20190417
  Serious: Yes (Other)
  Sender: FDA-Public Use
  Company Number: PHHY2019US017443

PATIENT
  Age: 6 Year
  Sex: Female

DRUGS (2)
  1. CLOBETASOL [Suspect]
     Active Substance: CLOBETASOL
     Indication: LICHEN SCLEROSUS
     Dosage: 0.05 %, BID
     Route: 061
  2. CLOBETASOL [Suspect]
     Active Substance: CLOBETASOL
     Dosage: 0.05 %, QD
     Route: 061

REACTIONS (5)
  - Weight increased [Unknown]
  - Cushing^s syndrome [Unknown]
  - Product use in unapproved indication [Unknown]
  - Cushingoid [Unknown]
  - Swelling face [Unknown]
